FAERS Safety Report 13798177 (Version 1)
Quarter: 2017Q3

REPORT INFORMATION
  Report Type: Spontaneous
  Country: US (occurrence: US)
  Receive Date: 20170726
  Receipt Date: 20170726
  Transmission Date: 20171127
  Serious: Yes (Hospitalization)
  Sender: FDA-Public Use
  Company Number: None

PATIENT
  Age: 37 Year
  Sex: Female
  Weight: 60.75 kg

DRUGS (4)
  1. NEULASTA [Suspect]
     Active Substance: PEGFILGRASTIM
     Indication: WHITE BLOOD CELL DISORDER
     Dosage: ?          QUANTITY:1 INJECTION(S);OTHER FREQUENCY:1X 24HRS POST A/C;OTHER ROUTE:INJECTED INTO STOMACH?
     Dates: start: 20170608, end: 20170608
  2. CHEMOTHERAPY (A/C AND TAXOL) [Concomitant]
  3. ANTI-HISTAMINE [Concomitant]
     Active Substance: ANTIHISTAMINES NOS
  4. ANTI NAUSEA [Concomitant]
     Active Substance: DEXTROSE\FRUCTOSE\PHOSPHORIC ACID

REACTIONS (4)
  - Febrile neutropenia [None]
  - Product quality issue [None]
  - Neutropenic sepsis [None]
  - Drug ineffective [None]

NARRATIVE: CASE EVENT DATE: 20170615
